FAERS Safety Report 22918445 (Version 5)
Quarter: 2024Q1

REPORT INFORMATION
  Report Type: Other
  Country: US (occurrence: US)
  Receive Date: 20230907
  Receipt Date: 20240301
  Transmission Date: 20240410
  Serious: No
  Sender: FDA-Public Use
  Company Number: US-TRAVERE-2023TVT00294

PATIENT
  Age: 29 Year
  Sex: Male

DRUGS (2)
  1. FILSPARI [Suspect]
     Active Substance: SPARSENTAN
     Indication: IgA nephropathy
     Dosage: HE WOULD BE INCREASE TO THE 400MG DOSE ON ?FRIDAY 14-JUL-2023.
     Route: 048
     Dates: start: 20230630
  2. FILSPARI [Suspect]
     Active Substance: SPARSENTAN
     Dosage: 400 MG
     Route: 048
     Dates: start: 20230714

REACTIONS (3)
  - Abdominal pain upper [None]
  - Fatigue [Unknown]
  - Abdominal discomfort [None]
